FAERS Safety Report 23604212 (Version 2)
Quarter: 2024Q3

REPORT INFORMATION
  Report Type: Spontaneous
  Country: DE (occurrence: DE)
  Receive Date: 20240307
  Receipt Date: 20240716
  Transmission Date: 20241017
  Serious: Yes (Hospitalization, Other)
  Sender: SANDOZ
  Company Number: DE-BRISTOL-MYERS SQUIBB COMPANY-2024-016964

PATIENT
  Age: 72 Year
  Sex: Female

DRUGS (4)
  1. METHOTREXATE [Suspect]
     Active Substance: METHOTREXATE
     Dosage: 7.5 MG, PATIENT RESTARTED 28-SEP-2023UNK
     Route: 065
     Dates: end: 202307
  2. METHOTREXATE [Suspect]
     Active Substance: METHOTREXATE
     Indication: Rheumatoid arthritis
     Dosage: 7.5 MG, RESTARTED ON SEP-2023UNK
     Route: 065
  3. ORENCIA [Suspect]
     Active Substance: ABATACEPT
     Indication: Rheumatoid arthritis
     Dosage: 125 MG
     Route: 058
     Dates: end: 202307
  4. ORENCIA [Suspect]
     Active Substance: ABATACEPT
     Dosage: 125 MG,PATIENT RESTARTED 28-SEP-2023
     Route: 058

REACTIONS (8)
  - Liver injury [Recovered/Resolved]
  - Douglas^ abscess [Recovered/Resolved]
  - Diverticular perforation [Recovered/Resolved]
  - Abdominal abscess [Recovered/Resolved]
  - Diverticulitis [Recovered/Resolved]
  - Jugular vein thrombosis [Recovered/Resolved]
  - Abdominal adhesions [Recovered/Resolved]
  - Anaemia [Recovered/Resolved]

NARRATIVE: CASE EVENT DATE: 20230728
